FAERS Safety Report 18343445 (Version 1)
Quarter: 2020Q4

REPORT INFORMATION
  Report Type: Report from Study
  Country: US (occurrence: US)
  Receive Date: 20201005
  Receipt Date: 20201005
  Transmission Date: 20210113
  Serious: Yes (Hospitalization)
  Sender: FDA-Public Use
  Company Number: US-EISAI MEDICAL RESEARCH-EC-2020-077415

PATIENT
  Age: 77 Year
  Sex: Female
  Weight: 54.4 kg

DRUGS (13)
  1. LENVIMA [Suspect]
     Active Substance: LENVATINIB
     Route: 048
     Dates: start: 2020, end: 2020
  2. KEYTRUDA [Concomitant]
     Active Substance: PEMBROLIZUMAB
     Indication: OVARIAN CANCER METASTATIC
  3. CALCITRATE [Concomitant]
     Active Substance: CALCIUM CITRATE
  4. HCTZ [Concomitant]
     Active Substance: HYDROCHLOROTHIAZIDE
  5. LENVIMA [Suspect]
     Active Substance: LENVATINIB
     Indication: ENDOMETRIAL NEOPLASM
     Route: 048
     Dates: start: 2020, end: 2020
  6. CENTRUM SILVER [Concomitant]
     Active Substance: MINERALS\VITAMINS
  7. ALLOPURINOL. [Concomitant]
     Active Substance: ALLOPURINOL
  8. MAGNESIUM [Concomitant]
     Active Substance: MAGNESIUM
  9. LENVIMA [Suspect]
     Active Substance: LENVATINIB
     Route: 048
     Dates: start: 2020, end: 20200909
  10. ALPRAZOLAM. [Concomitant]
     Active Substance: ALPRAZOLAM
  11. SYNTHROID [Concomitant]
     Active Substance: LEVOTHYROXINE SODIUM
  12. KEYTRUDA [Concomitant]
     Active Substance: PEMBROLIZUMAB
     Indication: ENDOMETRIAL CANCER
     Dosage: FREQUENCY AND DOSING NOT PROVIDED
     Route: 041
     Dates: end: 202009
  13. ASPIRIN. [Concomitant]
     Active Substance: ASPIRIN

REACTIONS (10)
  - Muscle spasms [Unknown]
  - Lethargy [Recovering/Resolving]
  - Seizure [Recovering/Resolving]
  - Decreased appetite [Recovering/Resolving]
  - Arthralgia [Unknown]
  - Asthenia [Recovering/Resolving]
  - Fatigue [Unknown]
  - Somnolence [Unknown]
  - Myalgia [Unknown]
  - Fall [Unknown]

NARRATIVE: CASE EVENT DATE: 2020
